FAERS Safety Report 9816445 (Version 2)
Quarter: 2014Q2

REPORT INFORMATION
  Report Type: Spontaneous
  Country: US (occurrence: US)
  Receive Date: 20140114
  Receipt Date: 20140523
  Transmission Date: 20141212
  Serious: Yes (Other)
  Sender: FDA-Public Use
  Company Number: US-TEVA-455629USA

PATIENT
  Age: 28 Year
  Sex: Female
  Weight: 99.88 kg

DRUGS (2)
  1. PARAGARD 380A [Suspect]
     Indication: CONTRACEPTION
     Route: 015
     Dates: start: 20130201, end: 20140102
  2. LABETALOL [Concomitant]
     Indication: HYPERTENSION
     Dosage: 400 MILLIGRAM DAILY;
     Route: 048

REACTIONS (4)
  - Device dislocation [Recovered/Resolved]
  - Pelvic pain [Recovered/Resolved]
  - Menstrual disorder [Unknown]
  - Abdominal pain lower [Recovered/Resolved]
